FAERS Safety Report 22127344 (Version 1)
Quarter: 2023Q1

REPORT INFORMATION
  Report Type: Spontaneous
  Country: US (occurrence: US)
  Receive Date: 20230322
  Receipt Date: 20230322
  Transmission Date: 20230417
  Serious: No
  Sender: FDA-Public Use
  Company Number: US-ALLERGAN-2303916US

PATIENT
  Age: 27 Year
  Sex: Female

DRUGS (1)
  1. KYBELLA [Suspect]
     Active Substance: DEOXYCHOLIC ACID
     Indication: Lipolysis procedure
     Dosage: UNK, SINGLE
     Route: 058
     Dates: start: 20220520, end: 20220520

REACTIONS (5)
  - Injection site swelling [Not Recovered/Not Resolved]
  - Contusion [Recovered/Resolved]
  - Injection site hypoaesthesia [Recovering/Resolving]
  - Injection site pain [Not Recovered/Not Resolved]
  - Injection site induration [Recovering/Resolving]

NARRATIVE: CASE EVENT DATE: 20220520
